FAERS Safety Report 9318592 (Version 2)
Quarter: 2013Q2

REPORT INFORMATION
  Report Type: Spontaneous
  Country: GB (occurrence: GB)
  Receive Date: 20130530
  Receipt Date: 20130605
  Transmission Date: 20140414
  Serious: Yes (Life-Threatening, Hospitalization)
  Sender: FDA-Public Use
  Company Number: GB-PFIZER INC-2013161928

PATIENT
  Age: 31 Year
  Sex: Female
  Weight: 90 kg

DRUGS (17)
  1. HEMABATE [Suspect]
     Indication: POSTPARTUM HAEMORRHAGE
     Dosage: 250 UG, UNK
     Route: 015
  2. SALBUTAMOL [Concomitant]
     Dosage: UNK
     Route: 055
  3. SALBUTAMOL [Concomitant]
     Dosage: UNK
     Route: 042
  4. SYMBICORT [Concomitant]
     Dosage: UNK
  5. BRICANYL [Concomitant]
     Dosage: UNK
     Route: 055
  6. PHENYLEPHRINE [Concomitant]
     Dosage: UNK
  7. THIOPENTONE [Concomitant]
     Dosage: UNK
  8. SUXAMETHONIUM [Concomitant]
     Dosage: UNK
  9. ATRACURIUM [Concomitant]
     Dosage: UNK
  10. SEVOFLURANE [Concomitant]
     Dosage: UNK
  11. AUGMENTIN [Concomitant]
     Dosage: UNK
  12. SYNTOCINON [Concomitant]
     Dosage: UNK
  13. TRANEXAMIC ACID [Concomitant]
     Dosage: UNK
  14. MAGNESIUM [Concomitant]
     Dosage: UNK
  15. KETAMINE [Concomitant]
     Dosage: UNK
  16. MIDAZOLAM [Concomitant]
     Dosage: UNK
  17. AMINOPHYLLINE [Concomitant]
     Dosage: UNK

REACTIONS (1)
  - Bronchospasm [Recovered/Resolved]
